FAERS Safety Report 6658392-9 (Version None)
Quarter: 2010Q1

REPORT INFORMATION
  Report Type: 
  Country: None (occurrence: None)
  Receive Date: 20100330
  Receipt Date: 20100302
  Transmission Date: 20100710
  Serious: No
  Sender: FDA-Public Use
  Company Number: US-BIOGENIDEC-2010BI007226

PATIENT
  Age: 59 Year
  Sex: Female

DRUGS (1)
  1. TYSABRI [Suspect]
     Indication: MULTIPLE SCLEROSIS
     Route: 042
     Dates: start: 20091118

REACTIONS (6)
  - CONTUSION [None]
  - EXCORIATION [None]
  - EYE INFECTION [None]
  - FALL [None]
  - ORAL HERPES [None]
  - ROTATOR CUFF SYNDROME [None]
